FAERS Safety Report 5085835-7 (Version None)
Quarter: 2006Q3

REPORT INFORMATION
  Report Type: 
  Country: None (occurrence: None)
  Receive Date: 20060817
  Receipt Date: 20060619
  Transmission Date: 20061208
  Serious: Yes (Death)
  Sender: FDA-Public Use
  Company Number: S06-USA-03223-01

PATIENT
  Age: 31 Year
  Sex: Male

DRUGS (1)
  1. LEXAPRO [Suspect]
     Dates: end: 20060408

REACTIONS (2)
  - COMPLETED SUICIDE [None]
  - THINKING ABNORMAL [None]
